FAERS Safety Report 16740680 (Version 1)
Quarter: 2019Q3

REPORT INFORMATION
  Report Type: Spontaneous
  Country: US (occurrence: US)
  Receive Date: 20190826
  Receipt Date: 20190826
  Transmission Date: 20191005
  Serious: No
  Sender: FDA-Public Use
  Company Number: US-PERRIGO-18US011981

PATIENT
  Sex: Female
  Weight: 61.22 kg

DRUGS (4)
  1. SEROQUEL [Concomitant]
     Active Substance: QUETIAPINE FUMARATE
     Indication: INSOMNIA
     Dosage: UNK
     Route: 048
  2. VALIUM [Concomitant]
     Active Substance: DIAZEPAM
     Indication: MUSCLE SPASMS
     Dosage: UNK
     Route: 065
     Dates: start: 2017
  3. NICOTINE POLACRILEX [Suspect]
     Active Substance: NICOTINE
     Indication: SMOKING CESSATION THERAPY
     Dosage: 1/4 LOZENGE, UP TO 12 TIMES DAILY
     Route: 002
     Dates: start: 2015, end: 20181023
  4. IMIPRAMINE [Concomitant]
     Active Substance: IMIPRAMINE
     Indication: NERVE INJURY
     Dosage: UNK
     Route: 065
     Dates: start: 2016

REACTIONS (3)
  - Nicotine dependence [Not Recovered/Not Resolved]
  - Gastrointestinal pain [Not Recovered/Not Resolved]
  - Underdose [Recovered/Resolved]

NARRATIVE: CASE EVENT DATE: 2015
